FAERS Safety Report 9746954 (Version 3)
Quarter: 2014Q1

REPORT INFORMATION
  Report Type: Report from Study
  Country: CA (occurrence: CA)
  Receive Date: 20131211
  Receipt Date: 20140114
  Transmission Date: 20141002
  Serious: Yes (Other)
  Sender: FDA-Public Use
  Company Number: CA-ABBVIE-13P-028-1175903-00

PATIENT
  Age: 17 Year
  Sex: Female
  Weight: 61.29 kg

DRUGS (7)
  1. HUMIRA [Suspect]
     Indication: COLITIS ULCERATIVE
     Route: 058
     Dates: start: 20131115, end: 20131201
  2. HUMIRA [Suspect]
     Dates: start: 201312
  3. MEZAVANT [Concomitant]
     Indication: COLITIS ULCERATIVE
     Route: 048
     Dates: start: 20131115
  4. PREDNISONE [Concomitant]
     Indication: COLITIS ULCERATIVE
     Route: 048
     Dates: start: 20131108
  5. FOLIC ACID [Concomitant]
     Indication: VITAMIN SUPPLEMENTATION
     Route: 048
  6. VITAMIN D [Concomitant]
     Indication: VITAMIN SUPPLEMENTATION
     Route: 048
     Dates: start: 20131108
  7. CALCIUM [Concomitant]
     Indication: MINERAL SUPPLEMENTATION
     Dosage: UNKNOWN
     Route: 048
     Dates: start: 20131108

REACTIONS (5)
  - Haemolytic anaemia [Recovered/Resolved]
  - Nausea [Not Recovered/Not Resolved]
  - Haemoglobin decreased [Unknown]
  - Enzyme activity abnormal [Unknown]
  - Blood lactate dehydrogenase abnormal [Unknown]
